FAERS Safety Report 9968059 (Version 1)
Quarter: 2014Q1

REPORT INFORMATION
  Report Type: Report from Study
  Country: US (occurrence: US)
  Receive Date: 20140306
  Receipt Date: 20140306
  Transmission Date: 20141002
  Serious: No
  Sender: FDA-Public Use
  Company Number: US-ABBVIE-13P-163-1142089-00

PATIENT
  Age: 47 Year
  Sex: Male

DRUGS (10)
  1. HUMIRA [Suspect]
     Indication: COLITIS ULCERATIVE
     Dosage: ON THURSDAY
  2. METFORMIN [Concomitant]
     Indication: DIABETES MELLITUS
  3. AZATHIOPRINE [Concomitant]
     Indication: COLITIS ULCERATIVE
  4. METOPROLOL [Concomitant]
     Indication: BLOOD PRESSURE
  5. LANTUS [Concomitant]
     Indication: DIABETES MELLITUS
     Dosage: AT BEDTIME
  6. LISINOPRIL [Concomitant]
     Indication: BLOOD PRESSURE
  7. LISINOPRIL [Concomitant]
     Indication: RENAL IMPAIRMENT
  8. B-12 [Concomitant]
     Indication: PRODUCT USED FOR UNKNOWN INDICATION
  9. WARFARIN [Concomitant]
     Indication: DEEP VEIN THROMBOSIS
     Dosage: ON MONDAY AND FRIDAYS
  10. WARFARIN [Concomitant]
     Dosage: ON TUES,WED,THURS,SAT AND SUN

REACTIONS (1)
  - Pruritus [Recovered/Resolved]
